FAERS Safety Report 9899901 (Version 9)
Quarter: 2015Q2

REPORT INFORMATION
  Report Type: Report from Study
  Country: CA (occurrence: CA)
  Receive Date: 20140214
  Receipt Date: 20150522
  Transmission Date: 20150821
  Serious: Yes (Death, Hospitalization, Other)
  Sender: FDA-Public Use
  Company Number: CA-INCYTE CORPORATION-2013IN001062

PATIENT
  Age: 65 Year
  Sex: Male

DRUGS (53)
  1. VITAMIN D [Concomitant]
     Active Substance: CHOLECALCIFEROL
     Route: 065
  2. TESTOSTERON [Concomitant]
     Active Substance: TESTOSTERONE
     Route: 065
  3. TESTOSTERON [Concomitant]
     Active Substance: TESTOSTERONE
     Route: 065
  4. EXJADE [Suspect]
     Active Substance: DEFERASIROX
     Dosage: 4000 MG, QD
     Route: 048
  5. LYRICA [Concomitant]
     Active Substance: PREGABALIN
     Route: 065
  6. CALCIUM [Concomitant]
     Active Substance: CALCIUM
     Indication: PRODUCT USED FOR UNKNOWN INDICATION
     Dosage: UNK
  7. CALCIUM [Concomitant]
     Active Substance: CALCIUM
     Route: 065
  8. EXJADE [Suspect]
     Active Substance: DEFERASIROX
     Dosage: 3500 MG, QD
     Route: 048
  9. EPREX [Concomitant]
     Active Substance: ERYTHROPOIETIN
     Indication: PRODUCT USED FOR UNKNOWN INDICATION
     Dosage: UNK
  10. EPREX [Concomitant]
     Active Substance: ERYTHROPOIETIN
     Dosage: 75000 UNITS ONCE PER WEEK
     Route: 065
  11. FOLIC ACID. [Concomitant]
     Active Substance: FOLIC ACID
     Dosage: UNK UKN, UNK
  12. VITAMIN D [Concomitant]
     Active Substance: CHOLECALCIFEROL
     Route: 065
  13. LYRICA [Concomitant]
     Active Substance: PREGABALIN
     Dosage: UNK UKN, UNK
  14. CALCIUM [Concomitant]
     Active Substance: CALCIUM
     Route: 065
  15. CALCIUM [Concomitant]
     Active Substance: CALCIUM
     Route: 065
  16. EUROFOLIC [Concomitant]
     Route: 065
  17. JAKAFI [Suspect]
     Active Substance: RUXOLITINIB
     Indication: MYELOFIBROSIS
     Dosage: 20 MG, BID
     Route: 048
     Dates: start: 20130422
  18. EXJADE [Suspect]
     Active Substance: DEFERASIROX
     Dosage: 2000 MG, BID
     Route: 048
  19. EPREX [Concomitant]
     Active Substance: ERYTHROPOIETIN
     Dosage: 75000 UNITS ONCE PER WEEK
  20. EPREX [Concomitant]
     Active Substance: ERYTHROPOIETIN
     Dosage: 75000 UNITS ONCE PER WEEK
     Route: 065
  21. FOLIC ACID. [Concomitant]
     Active Substance: FOLIC ACID
     Dosage: UNK
     Route: 065
  22. VITAMIN D [Concomitant]
     Active Substance: CHOLECALCIFEROL
     Dosage: UNK UKN, UNK
  23. VITAMIN D [Concomitant]
     Active Substance: CHOLECALCIFEROL
     Route: 065
  24. VITAMIN D [Concomitant]
     Active Substance: CHOLECALCIFEROL
     Route: 065
  25. TESTOSTERON [Concomitant]
     Active Substance: TESTOSTERONE
     Route: 065
  26. LYRICA [Concomitant]
     Active Substance: PREGABALIN
     Route: 065
  27. CALCIUM [Concomitant]
     Active Substance: CALCIUM
     Route: 065
  28. EUROFOLIC [Concomitant]
     Route: 065
  29. EPREX [Concomitant]
     Active Substance: ERYTHROPOIETIN
     Dosage: 75000 UNITS TWICE PER WEEK
  30. FOLIC ACID. [Concomitant]
     Active Substance: FOLIC ACID
     Indication: PRODUCT USED FOR UNKNOWN INDICATION
     Dosage: UNK
  31. FOLIC ACID. [Concomitant]
     Active Substance: FOLIC ACID
     Route: 065
  32. VITAMIN D [Concomitant]
     Active Substance: CHOLECALCIFEROL
     Indication: PRODUCT USED FOR UNKNOWN INDICATION
     Dosage: UNK
  33. TESTOSTERON [Concomitant]
     Active Substance: TESTOSTERONE
     Route: 065
  34. JAKAFI [Suspect]
     Active Substance: RUXOLITINIB
     Dosage: 25 MG, BID
     Route: 048
     Dates: start: 20130422
  35. EPREX [Concomitant]
     Active Substance: ERYTHROPOIETIN
     Route: 065
  36. EPREX [Concomitant]
     Active Substance: ERYTHROPOIETIN
     Route: 065
  37. LYRICA [Concomitant]
     Active Substance: PREGABALIN
     Indication: PRODUCT USED FOR UNKNOWN INDICATION
     Dosage: UNK
  38. LYRICA [Concomitant]
     Active Substance: PREGABALIN
     Route: 065
  39. CALCIUM [Concomitant]
     Active Substance: CALCIUM
     Dosage: UNK UKN, UNK
  40. EUROFOLIC [Concomitant]
     Indication: PRODUCT USED FOR UNKNOWN INDICATION
     Dosage: UNK
  41. EXJADE [Suspect]
     Active Substance: DEFERASIROX
     Indication: IRON OVERLOAD
     Dosage: UNK
     Route: 048
     Dates: start: 20131101
  42. EXJADE [Suspect]
     Active Substance: DEFERASIROX
     Dosage: 3000 MG, QD
     Route: 048
  43. EPREX [Concomitant]
     Active Substance: ERYTHROPOIETIN
     Dosage: 75000 UNITS ONCE PER WEEK
     Route: 065
  44. EPREX [Concomitant]
     Active Substance: ERYTHROPOIETIN
     Dosage: 75000 UNITS TWICE PER WEEK
  45. EPREX [Concomitant]
     Active Substance: ERYTHROPOIETIN
     Dosage: 75000 UNITS ONCE PER WEEK
     Route: 065
  46. EPREX [Concomitant]
     Active Substance: ERYTHROPOIETIN
     Dosage: 75000 UNITS TWICE PER WEEK
  47. FOLIC ACID. [Concomitant]
     Active Substance: FOLIC ACID
     Dosage: UNK
     Route: 065
  48. FOLIC ACID. [Concomitant]
     Active Substance: FOLIC ACID
     Route: 065
  49. TESTOSTERON [Concomitant]
     Active Substance: TESTOSTERONE
     Indication: PRODUCT USED FOR UNKNOWN INDICATION
     Dosage: UNK UKN, UNK
  50. LYRICA [Concomitant]
     Active Substance: PREGABALIN
     Route: 065
  51. EUROFOLIC [Concomitant]
     Dosage: UNK UKN, UNK
  52. EUROFOLIC [Concomitant]
     Route: 065
  53. EUROFOLIC [Concomitant]
     Route: 065

REACTIONS (13)
  - Intervertebral disc protrusion [Unknown]
  - Renal disorder [Unknown]
  - Dizziness [Unknown]
  - Malaise [Unknown]
  - Lung infection [Unknown]
  - Hyperhidrosis [Unknown]
  - Nasopharyngitis [Unknown]
  - Pain in extremity [Unknown]
  - Headache [Unknown]
  - Death [Fatal]
  - Serum ferritin increased [Unknown]
  - Haemoglobin decreased [Unknown]
  - Diarrhoea [Unknown]

NARRATIVE: CASE EVENT DATE: 20140110
